FAERS Safety Report 5875170-9 (Version None)
Quarter: 2008Q3

REPORT INFORMATION
  Report Type: 
  Country: None (occurrence: None)
  Receive Date: 20080909
  Receipt Date: 20080829
  Transmission Date: 20090109
  Serious: Yes (Hospitalization, Other)
  Sender: FDA-Public Use
  Company Number: FR-JNJFOC-20080900351

PATIENT
  Age: 68 Year
  Sex: Female

DRUGS (7)
  1. REMICADE [Suspect]
     Dosage: 6 YEARS
     Route: 042
  2. REMICADE [Suspect]
     Dosage: 6 YEARS
     Route: 042
  3. REMICADE [Suspect]
     Indication: RHEUMATOID ARTHRITIS
     Dosage: 6 YEARS
     Route: 042
  4. NOVATREX [Concomitant]
  5. OROCAL D3 [Concomitant]
  6. FOSAMAX [Concomitant]
  7. ASPIRIN [Concomitant]

REACTIONS (3)
  - PSORIASIS [None]
  - PUSTULAR PSORIASIS [None]
  - SEBORRHOEIC KERATOSIS [None]
